FAERS Safety Report 8827759 (Version 3)
Quarter: 2015Q3

REPORT INFORMATION
  Report Type: Report from Study
  Country: US (occurrence: US)
  Receive Date: 20121005
  Receipt Date: 20150820
  Transmission Date: 20151125
  Serious: Yes (Hospitalization, Other)
  Sender: FDA-Public Use
  Company Number: US-ROCHE-1134750

PATIENT
  Sex: Male

DRUGS (22)
  1. ZOVIRAX [Concomitant]
     Active Substance: ACYCLOVIR
  2. ETOPOSIDE. [Concomitant]
     Active Substance: ETOPOSIDE
  3. LIDOCAINE. [Concomitant]
     Active Substance: LIDOCAINE
  4. ONCOVIN [Concomitant]
     Active Substance: VINCRISTINE SULFATE
  5. CIPRO [Concomitant]
     Active Substance: CIPROFLOXACIN HYDROCHLORIDE
     Dosage: EVERY 12 HR FOR SEVEN DAY
     Route: 065
  6. DECADRON [Concomitant]
     Active Substance: DEXAMETHASONE
  7. IFEX [Concomitant]
     Active Substance: IFOSFAMIDE
  8. BENADRYL [Concomitant]
     Active Substance: DIPHENHYDRAMINE HYDROCHLORIDE
  9. CYTOXAN [Concomitant]
     Active Substance: CYCLOPHOSPHAMIDE
  10. PREDNISONE. [Concomitant]
     Active Substance: PREDNISONE
     Route: 065
  11. IFOSFAMIDE. [Concomitant]
     Active Substance: IFOSFAMIDE
  12. LOMOTIL (UNITED STATES) [Concomitant]
  13. MESNA. [Concomitant]
     Active Substance: MESNA
  14. HYDROXYDAUNORUBICIN [Concomitant]
     Active Substance: DOXORUBICIN
  15. PREDNISONE. [Concomitant]
     Active Substance: PREDNISONE
     Route: 065
  16. BIAXIN [Concomitant]
     Active Substance: CLARITHROMYCIN
  17. HYTRIN [Concomitant]
     Active Substance: TERAZOSIN HYDROCHLORIDE
  18. TYLENOL #1 (UNITED STATES) [Concomitant]
  19. RITUXAN [Suspect]
     Active Substance: RITUXIMAB
     Indication: CHRONIC LYMPHOCYTIC LEUKAEMIA
     Dosage: VIAL SIZE: 100 MG
     Route: 042
     Dates: start: 20000509
  20. FLUDARABINE [Concomitant]
     Active Substance: FLUDARABINE PHOSPHATE
  21. CYCLOPHOSPHAMIDE. [Concomitant]
     Active Substance: CYCLOPHOSPHAMIDE
  22. GUIATUSS [Concomitant]
     Active Substance: GUAIFENESIN

REACTIONS (13)
  - Herpes simplex [Unknown]
  - Inflammation [Unknown]
  - Erythropoiesis abnormal [Unknown]
  - Upper respiratory tract infection [Unknown]
  - Cheilitis [Unknown]
  - Fatigue [Unknown]
  - Lymphadenopathy [Unknown]
  - Cough [Unknown]
  - Clostridium difficile infection [Unknown]
  - VIIth nerve paralysis [Unknown]
  - Lip swelling [Unknown]
  - Tongue ulceration [Unknown]
  - Postoperative wound infection [Unknown]
